FAERS Safety Report 9913527 (Version 1)
Quarter: 2014Q1

REPORT INFORMATION
  Report Type: Spontaneous
  Country: DE (occurrence: None)
  Receive Date: 20140218
  Receipt Date: 20140218
  Transmission Date: 20141002
  Serious: Yes (Life-Threatening)
  Sender: FDA-Public Use
  Company Number: VAL_02975_2014

PATIENT
  Age: 47 Year
  Sex: Female

DRUGS (5)
  1. METOPROLOL (METOPROLOL - METOPROLOL TARTRATE) [Suspect]
     Indication: PRODUCT USED FOR UNKNOWN INDICATION
     Route: 048
     Dates: start: 20060601, end: 20060623
  2. CITALOPRAM HYDROCHLORIDE [Suspect]
     Indication: PRODUCT USED FOR UNKNOWN INDICATION
     Route: 048
     Dates: start: 20060607, end: 20060610
  3. QUILONORM [Suspect]
     Indication: PRODUCT USED FOR UNKNOWN INDICATION
     Route: 048
     Dates: start: 20060712, end: 20060717
  4. TAVOR /00273201/ [Concomitant]
  5. DIPIPERON [Concomitant]

REACTIONS (5)
  - Sinus bradycardia [None]
  - Tri-iodothyronine decreased [None]
  - Hypotension [None]
  - Dysarthria [None]
  - Altered state of consciousness [None]
